FAERS Safety Report 6304835-X (Version None)
Quarter: 2009Q3

REPORT INFORMATION
  Report Type: 
  Country: None (occurrence: None)
  Receive Date: 20090811
  Receipt Date: 20090402
  Transmission Date: 20100115
  Serious: Yes (Other)
  Sender: FDA-Public Use
  Company Number: PHHO2009GB01600

PATIENT
  Sex: Male
  Weight: 75 kg

DRUGS (10)
  1. RAD 666 RAD+TAB+PTR [Suspect]
     Indication: HEART TRANSPLANT
     Dosage: 1.5 MG, BID
     Route: 048
     Dates: start: 20071124
  2. RAD 666 RAD+TAB+PTR [Suspect]
     Dosage: 0.75 MG, BID
     Route: 048
  3. NEORAL [Suspect]
     Indication: HEART TRANSPLANT
     Dosage: 50 MG, BID
     Route: 048
     Dates: start: 20071124, end: 20090325
  4. NEORAL [Suspect]
     Dosage: 75 MG DAILY
     Route: 048
     Dates: start: 20090326
  5. PREDNISOLONE [Concomitant]
  6. ATORVASTATIN [Concomitant]
  7. FRUSEMIDE [Concomitant]
  8. ASPIRIN [Concomitant]
  9. LANSOPRAZOLE [Concomitant]
  10. QUININE [Concomitant]

REACTIONS (5)
  - BLOOD CREATININE INCREASED [None]
  - BLOOD UREA INCREASED [None]
  - NEPHROPATHY TOXIC [None]
  - OEDEMA PERIPHERAL [None]
  - RENAL IMPAIRMENT [None]
